FAERS Safety Report 15804868 (Version 1)
Quarter: 2019Q1

REPORT INFORMATION
  Report Type: Spontaneous
  Country: PT (occurrence: PT)
  Receive Date: 20190109
  Receipt Date: 20190109
  Transmission Date: 20190417
  Serious: Yes (Other)
  Sender: FDA-Public Use
  Company Number: PT-AUROBINDO-AUR-APL-2017-46030

PATIENT
  Age: 8 Year
  Sex: Male

DRUGS (2)
  1. KETOROLAC [Suspect]
     Active Substance: KETOROLAC\KETOROLAC TROMETHAMINE
     Indication: PRODUCT USED FOR UNKNOWN INDICATION
     Dosage: UNK
     Route: 065
  2. VIBROCIL [DIMETHINDENE\NEOMYCIN\PHENYLEPHRINE] [Suspect]
     Active Substance: DIMETHINDENE\NEOMYCIN\PHENYLEPHRINE
     Indication: RHINITIS
     Dosage: UNK
     Route: 065
     Dates: start: 201705, end: 201711

REACTIONS (4)
  - Overdose [Unknown]
  - Nasal turbinate hypertrophy [Unknown]
  - Renal failure [Unknown]
  - Medication error [Unknown]
